FAERS Safety Report 5091317-9 (Version None)
Quarter: 2006Q3

REPORT INFORMATION
  Report Type: 
  Country: None (occurrence: None)
  Receive Date: 20060824
  Receipt Date: 20060811
  Transmission Date: 20061208
  Serious: Yes (Death)
  Sender: FDA-Public Use
  Company Number: 2006058393

PATIENT
  Age: 53 Year
  Sex: Male
  Weight: 101.1521 kg

DRUGS (13)
  1. BEXTRA [Suspect]
     Indication: ARTHRITIS
     Dosage: 20 MG (20 MG, 1 IN 1 D), UNKNOWN
     Dates: start: 20030828, end: 20050204
  2. BEXTRA [Suspect]
     Indication: BACK PAIN
     Dosage: 20 MG (20 MG, 1 IN 1 D), UNKNOWN
     Dates: start: 20030828, end: 20050204
  3. METHADOSE (METHADONE HYDROCHLORIDE) [Concomitant]
  4. METOCLOPRAMIDE [Concomitant]
  5. CLONIDINE [Concomitant]
  6. AMBIEN [Concomitant]
  7. DYAZIDE [Concomitant]
  8. NEXIUM [Concomitant]
  9. ASPIRIN [Concomitant]
  10. VIAGRA [Concomitant]
  11. LOTREL [Concomitant]
  12. TOPROL-XL [Concomitant]
  13. MEDROL ACETATE [Concomitant]

REACTIONS (9)
  - ALCOHOL USE [None]
  - ARTERIOSCLEROSIS [None]
  - ARTHRITIS [None]
  - CARDIOMEGALY [None]
  - GASTROINTESTINAL DISORDER [None]
  - HYPERTENSION [None]
  - LOSS OF CONSCIOUSNESS [None]
  - MYOCARDIAL INFARCTION [None]
  - VENTRICULAR HYPERTROPHY [None]
